FAERS Safety Report 7623534-5 (Version None)
Quarter: 2011Q3

REPORT INFORMATION
  Report Type: 
  Country: None (occurrence: None)
  Receive Date: 20110720
  Receipt Date: 20110707
  Transmission Date: 20111222
  Serious: Yes (Other)
  Sender: FDA-Public Use
  Company Number: DE-ELI_LILLY_AND_COMPANY-DE201105002738

PATIENT
  Sex: Male

DRUGS (2)
  1. STRATTERA [Suspect]
     Indication: ATTENTION DEFICIT/HYPERACTIVITY DISORDER
     Dosage: 18 MG, UNKNOWN
     Route: 065
     Dates: start: 20110201, end: 20110401
  2. STRATTERA [Suspect]
     Dosage: 10 MG, UNKNOWN
     Route: 065
     Dates: start: 20110401, end: 20110401

REACTIONS (8)
  - CONVULSION [None]
  - LOSS OF CONSCIOUSNESS [None]
  - HEADACHE [None]
  - DISORIENTATION [None]
  - VOMITING [None]
  - DEPRESSIVE SYMPTOM [None]
  - EPILEPSY [None]
  - NAUSEA [None]
